FAERS Safety Report 9050734 (Version 1)
Quarter: 2013Q1

REPORT INFORMATION
  Report Type: Spontaneous
  Country: US (occurrence: US)
  Receive Date: 20130205
  Receipt Date: 20130205
  Transmission Date: 20140127
  Serious: Yes (Other)
  Sender: FDA-Public Use
  Company Number: US-009507513-1206USA03873

PATIENT
  Age: 5 Year
  Sex: Male
  Weight: 19 kg

DRUGS (2)
  1. SINGULAIR [Suspect]
     Indication: MULTIPLE ALLERGIES
     Dosage: 4 MG, UNK
     Route: 048
  2. SINGULAIR [Suspect]
     Indication: ASTHMA

REACTIONS (5)
  - Mood swings [Unknown]
  - Depression [Unknown]
  - Irritability [Unknown]
  - Self esteem decreased [Unknown]
  - Suicidal ideation [Unknown]
